FAERS Safety Report 6871873-8 (Version None)
Quarter: 2010Q3

REPORT INFORMATION
  Report Type: 
  Country: None (occurrence: None)
  Receive Date: 20100723
  Receipt Date: 20100714
  Transmission Date: 20110219
  Serious: Yes (Death)
  Sender: FDA-Public Use
  Company Number: US-PFIZER INC-2010088732

PATIENT

DRUGS (1)
  1. CEREBYX [Suspect]
     Indication: CONVULSION
     Dosage: 1000 MG, SINGLE
     Route: 064
     Dates: start: 20100713

REACTIONS (2)
  - DEATH [None]
  - DRUG EXPOSURE DURING PREGNANCY [None]
